FAERS Safety Report 6869837-3 (Version None)
Quarter: 2010Q3

REPORT INFORMATION
  Report Type: 
  Country: None (occurrence: None)
  Receive Date: 20100721
  Receipt Date: 20100707
  Transmission Date: 20110219
  Serious: Yes (Life-Threatening, Hospitalization)
  Sender: FDA-Public Use
  Company Number: JHP201000206

PATIENT
  Age: 60 Year
  Sex: Male

DRUGS (1)
  1. DANTRIUM [Suspect]
     Indication: MUSCLE SPASTICITY
     Dosage: 50 MG X3X/DAY + 75 MG X 1/NIGHT, ORAL
     Route: 048

REACTIONS (7)
  - COLLAPSE OF LUNG [None]
  - DIAPHRAGMATIC DISORDER [None]
  - DYSPNOEA [None]
  - FATIGUE [None]
  - RESPIRATORY ACIDOSIS [None]
  - RESPIRATORY FAILURE [None]
  - SOMNOLENCE [None]
